FAERS Safety Report 23683945 (Version 3)
Quarter: 2024Q2

REPORT INFORMATION
  Report Type: Spontaneous
  Country: US (occurrence: US)
  Receive Date: 20240328
  Receipt Date: 20240424
  Transmission Date: 20240716
  Serious: Yes (Hospitalization, Other)
  Sender: FDA-Public Use
  Company Number: US-GSKCCFUS-Case-01964190_AE-109203

PATIENT
  Age: 56 Year
  Sex: Female

DRUGS (4)
  1. BENLYSTA [Suspect]
     Active Substance: BELIMUMAB
     Indication: Lupus nephritis
     Dosage: 400 MG, WE
     Dates: start: 20240308
  2. BENLYSTA [Suspect]
     Active Substance: BELIMUMAB
     Dosage: 200 MG
  3. MYCOPHENOLIC ACID [Concomitant]
     Active Substance: MYCOPHENOLIC ACID
     Indication: Product used for unknown indication
     Dosage: 360 MG
  4. PREDNISONE [Concomitant]
     Active Substance: PREDNISONE
     Indication: Product used for unknown indication
     Dosage: 60 MG

REACTIONS (12)
  - Colonoscopy [Unknown]
  - Anaemia [Unknown]
  - Myelitis transverse [Unknown]
  - Pain in extremity [Recovered/Resolved]
  - Peripheral swelling [Recovered/Resolved]
  - Dehydration [Recovering/Resolving]
  - Asthenia [Recovering/Resolving]
  - Insomnia [Recovering/Resolving]
  - Hyperchlorhydria [Recovering/Resolving]
  - Diarrhoea [Not Recovered/Not Resolved]
  - Mobility decreased [Unknown]
  - Dysstasia [Unknown]

NARRATIVE: CASE EVENT DATE: 20240310
